FAERS Safety Report 6410557-7 (Version None)
Quarter: 2009Q4

REPORT INFORMATION
  Report Type: 
  Country: None (occurrence: None)
  Receive Date: 20091022
  Receipt Date: 20091009
  Transmission Date: 20100525
  Serious: Yes (Hospitalization)
  Sender: FDA-Public Use
  Company Number: NL-GENENTECH-292529

PATIENT
  Sex: Male

DRUGS (3)
  1. BEVACIZUMAB [Suspect]
     Indication: COLORECTAL CANCER
     Dosage: 708 MG, UNK
     Route: 042
     Dates: start: 20080306
  2. CAPECITABINE [Suspect]
     Indication: COLORECTAL CANCER
     Dosage: 4000 MG, UNK
     Route: 048
     Dates: start: 20080306
  3. OXALIPLATIN [Suspect]
     Indication: COLORECTAL CANCER
     Dosage: 260 MG, UNK
     Route: 042
     Dates: start: 20080306

REACTIONS (2)
  - IRRITABLE BOWEL SYNDROME [None]
  - PSYCHOTIC DISORDER [None]
